FAERS Safety Report 7944657-7 (Version None)
Quarter: 2011Q4

REPORT INFORMATION
  Report Type: 
  Country: None (occurrence: None)
  Receive Date: 20111129
  Receipt Date: 20111123
  Transmission Date: 20120403
  Serious: Yes (Other)
  Sender: FDA-Public Use
  Company Number: US-JNJFOC-20111110739

PATIENT
  Sex: Male
  Weight: 68.04 kg

DRUGS (5)
  1. VICODIN [Concomitant]
     Indication: PAIN
     Route: 065
  2. NUCYNTA IR [Suspect]
     Indication: INTERVERTEBRAL DISC PROTRUSION
     Dosage: ONE DAILY
     Route: 048
     Dates: start: 20110701, end: 20111007
  3. FENTANYL [Suspect]
     Indication: INTERVERTEBRAL DISC PROTRUSION
     Route: 062
     Dates: start: 20111021
  4. NUCYNTA ER [Suspect]
     Indication: INTERVERTEBRAL DISC PROTRUSION
     Dosage: FOUR TIMES DAILY
     Route: 048
     Dates: start: 20111001, end: 20111007
  5. BUTRANS [Concomitant]
     Indication: PAIN
     Route: 062

REACTIONS (12)
  - BLISTER [None]
  - EATING DISORDER [None]
  - NAUSEA [None]
  - HALLUCINATION [None]
  - SUNBURN [None]
  - FORMICATION [None]
  - MALAISE [None]
  - VISION BLURRED [None]
  - INSOMNIA [None]
  - TREMOR [None]
  - THERMAL BURN [None]
  - PRODUCT QUALITY ISSUE [None]
